FAERS Safety Report 8956649 (Version 1)
Quarter: 2012Q4

REPORT INFORMATION
  Report Type: 
  Country: CA (occurrence: CA)
  Receive Date: 20121210
  Receipt Date: 20121210
  Transmission Date: 20130627
  Serious: Yes (Hospitalization)
  Sender: FDA-Public Use
  Company Number: CA-AMGEN-CANSP2012070755

PATIENT
  Age: 81 Year
  Sex: Female
  Weight: 70.9 kg

DRUGS (6)
  1. PROLIA [Suspect]
     Indication: OSTEOPOROSIS
     Dosage: 60 mg, q6mo
     Route: 058
     Dates: start: 20120320
  2. ALLOPURINOL [Concomitant]
     Dosage: 100 mg, qd
     Route: 048
     Dates: start: 201010
  3. METOPROLOL [Concomitant]
     Indication: HYPERTENSION
     Dosage: 25 mg, bid
     Route: 048
     Dates: start: 200703
  4. RASILEZ HCT [Concomitant]
     Indication: HYPERTENSION
     Dosage: UNK UNK, qd
     Route: 048
     Dates: start: 20111018
  5. CRESTOR [Concomitant]
     Indication: BLOOD CHOLESTEROL ABNORMAL
     Dosage: 5 mg, UNK
     Route: 048
     Dates: start: 201005
  6. DILAUDID [Concomitant]
     Dosage: 1 mg, prn
     Route: 048
     Dates: start: 20120718

REACTIONS (1)
  - Peripheral ischaemia [Recovered/Resolved]
